FAERS Safety Report 21642427 (Version 1)
Quarter: 2022Q4

REPORT INFORMATION
  Report Type: Report from Study
  Country: US (occurrence: US)
  Receive Date: 20221125
  Receipt Date: 20221125
  Transmission Date: 20230113
  Serious: No
  Sender: FDA-Public Use
  Company Number: US-ABBVIE-4164426

PATIENT
  Sex: Female

DRUGS (2)
  1. HUMIRA [Suspect]
     Active Substance: ADALIMUMAB
     Indication: Crohn^s disease
     Dosage: FORM STRENGTH: 40 MILLIGRAM
     Route: 058
     Dates: start: 2021
  2. HUMIRA [Suspect]
     Active Substance: ADALIMUMAB
     Dosage: FORM STRENGTH: 40 MILLIGRAM
     Route: 058

REACTIONS (12)
  - Urticaria [Unknown]
  - Depression [Unknown]
  - Pruritus [Unknown]
  - Insomnia [Unknown]
  - Illness [Unknown]
  - Arthralgia [Unknown]
  - Asthenia [Unknown]
  - Haemorrhoids [Unknown]
  - Diarrhoea [Unknown]
  - Therapeutic response shortened [Unknown]
  - Disturbance in attention [Unknown]
  - Abdominal pain [Unknown]
